FAERS Safety Report 9405570 (Version 2)
Quarter: 2015Q3

REPORT INFORMATION
  Report Type: Spontaneous
  Country: US (occurrence: US)
  Receive Date: 20130717
  Receipt Date: 20150901
  Transmission Date: 20151125
  Serious: No
  Sender: FDA-Public Use
  Company Number: US-PFIZER INC-2013205568

PATIENT
  Age: 53 Year
  Sex: Male
  Weight: 99.77 kg

DRUGS (2)
  1. VIAGRA [Suspect]
     Active Substance: SILDENAFIL CITRATE
     Indication: ERECTILE DYSFUNCTION
     Dosage: 25 MG, AS NEEDED
     Route: 048
  2. VIAGRA [Suspect]
     Active Substance: SILDENAFIL CITRATE
     Dosage: 50 MG TABLET DEPENDS IF HE GETS LUCKY, BUT ABOUT THREE TIMES A WEEK
     Route: 048

REACTIONS (6)
  - Ocular hyperaemia [Unknown]
  - Bowel movement irregularity [Unknown]
  - Feeling abnormal [Unknown]
  - Nasal congestion [Unknown]
  - Dizziness [Unknown]
  - Rhinorrhoea [Unknown]
